FAERS Safety Report 5774540-7 (Version None)
Quarter: 2008Q2

REPORT INFORMATION
  Report Type: 
  Country: None (occurrence: None)
  Receive Date: 20080616
  Receipt Date: 20080605
  Transmission Date: 20081010
  Serious: Yes (Other)
  Sender: FDA-Public Use
  Company Number: ZA-PFIZER INC-2008048700

PATIENT
  Age: 37 Year
  Sex: Female
  Weight: 59 kg

DRUGS (3)
  1. LYRICA [Suspect]
     Indication: TRIGEMINAL NEURALGIA
     Route: 048
  2. TOPAMAX [Suspect]
     Route: 048
  3. CHEMOTHERAPY NOS [Concomitant]

REACTIONS (3)
  - CONFUSIONAL STATE [None]
  - MOTOR DYSFUNCTION [None]
  - SOMNOLENCE [None]
